FAERS Safety Report 8291503-0 (Version None)
Quarter: 2012Q2

REPORT INFORMATION
  Report Type: 
  Country: None (occurrence: None)
  Receive Date: 20120417
  Receipt Date: 20120412
  Transmission Date: 20120825
  Serious: No
  Sender: FDA-Public Use
  Company Number: US-PFIZER INC-2012091783

PATIENT
  Sex: Male

DRUGS (9)
  1. LYRICA [Suspect]
     Indication: ROAD TRAFFIC ACCIDENT
  2. LYRICA [Suspect]
     Indication: SHOULDER OPERATION
  3. LYRICA [Suspect]
  4. LYRICA [Suspect]
  5. LYRICA [Suspect]
     Indication: CEREBROVASCULAR ACCIDENT PROPHYLAXIS
  6. LYRICA [Suspect]
     Indication: SURGERY
  7. LYRICA [Suspect]
     Indication: LIMB OPERATION
  8. LYRICA [Suspect]
     Indication: SCIATIC NERVE INJURY
     Dosage: UNK
     Dates: end: 20120101
  9. LYRICA [Suspect]
     Indication: CEREBROVASCULAR ACCIDENT

REACTIONS (1)
  - WITHDRAWAL SYNDROME [None]
